FAERS Safety Report 21107057 (Version 1)
Quarter: 2022Q3

REPORT INFORMATION
  Report Type: Spontaneous
  Country: US (occurrence: None)
  Receive Date: 20220720
  Receipt Date: 20220720
  Transmission Date: 20221027
  Serious: Yes (Other)
  Sender: FDA-Public Use
  Company Number: None

PATIENT
  Age: 83 Year
  Sex: Female
  Weight: 62.55 kg

DRUGS (7)
  1. VOTRIENT [Suspect]
     Active Substance: PAZOPANIB HYDROCHLORIDE
     Indication: Haemangioma of skin
     Dosage: FREQUENCY : DAILY;?
     Route: 048
     Dates: start: 20220114
  2. ELIQUIS [Concomitant]
     Active Substance: APIXABAN
  3. LOSARTAN [Concomitant]
     Active Substance: LOSARTAN
  4. diltiazem 360 mg [Concomitant]
  5. multivamin [Concomitant]
  6. Calcium  Magnesium Zinc [Concomitant]
  7. VITAMIN D [Concomitant]
     Active Substance: VITAMIN D NOS

REACTIONS (1)
  - Diarrhoea [None]
